FAERS Safety Report 15555455 (Version 2)
Quarter: 2018Q4

REPORT INFORMATION
  Report Type: Spontaneous
  Country: JP (occurrence: JP)
  Receive Date: 20181026
  Receipt Date: 20181206
  Transmission Date: 20190205
  Serious: Yes (Other)
  Sender: FDA-Public Use
  Company Number: JP-IMPAX LABORATORIES, INC-2018-IPXL-03447

PATIENT
  Age: 37 Year
  Sex: Female
  Weight: 56 kg

DRUGS (8)
  1. CEFOTIAM HYDROCHLORIDE [Suspect]
     Active Substance: CEFOTIAM HYDROCHLORIDE
     Indication: PREMEDICATION
     Dosage: UNK
     Route: 065
  2. METHYLPREDNISOLONE. [Concomitant]
     Active Substance: METHYLPREDNISOLONE
     Indication: RHEUMATIC DISORDER
     Dosage: 4 MILLIGRAM, DAILY
     Route: 048
  3. PIPERACILLIN SODIUM [Concomitant]
     Active Substance: PIPERACILLIN SODIUM
     Indication: ANTIBIOTIC PROPHYLAXIS
     Dosage: 1 GRAM
     Route: 042
  4. FOSFOMYCIN [Concomitant]
     Active Substance: FOSFOMYCIN
     Indication: ANTIBIOTIC PROPHYLAXIS
     Dosage: 1 GRAM
     Route: 042
  5. PREDNISOLONE SODIUM SUCCINATE [Concomitant]
     Active Substance: PREDNISOLONE SODIUM SUCCINATE
     Indication: PRODUCT USED FOR UNKNOWN INDICATION
     Dosage: 20 MILLIGRAM
     Route: 042
  6. HYDROXYZINE PAMOATE IR [Suspect]
     Active Substance: HYDROXYZINE PAMOATE
     Indication: PREMEDICATION
     Dosage: 50 MILLIGRAM
     Route: 065
  7. ATROPINE. [Concomitant]
     Active Substance: ATROPINE
     Indication: PREMEDICATION
     Dosage: 0.5 MILLIGRAM
     Route: 030
  8. METHOTREXATE. [Concomitant]
     Active Substance: METHOTREXATE
     Indication: RHEUMATIC DISORDER
     Dosage: 7.5 MILLIGRAM, DAILY
     Route: 048

REACTIONS (1)
  - Type I hypersensitivity [Recovered/Resolved]
